FAERS Safety Report 10062789 (Version 1)
Quarter: 2014Q2

REPORT INFORMATION
  Report Type: Spontaneous
  Country: GB (occurrence: GB)
  Receive Date: 20140407
  Receipt Date: 20140407
  Transmission Date: 20141212
  Serious: Yes (Other)
  Sender: FDA-Public Use
  Company Number: GB-ASTRAZENECA-2014SE22438

PATIENT
  Age: 43 Year
  Sex: Male

DRUGS (3)
  1. PROPOFOL [Suspect]
     Indication: ANAESTHESIA
     Route: 042
  2. FENTANYL [Suspect]
     Indication: ANAESTHESIA
  3. SEVOFLURANE [Concomitant]

REACTIONS (1)
  - Dissociative amnesia [Unknown]
